FAERS Safety Report 4333038-3 (Version None)
Quarter: 2004Q2

REPORT INFORMATION
  Report Type: 
  Country: None (occurrence: None)
  Receive Date: 20040405
  Receipt Date: 20040405
  Transmission Date: 20050107
  Serious: Yes (Disabling)
  Sender: FDA-Public Use
  Company Number: None

PATIENT
  Age: 45 Year
  Sex: Female
  Weight: 61.2356 kg

DRUGS (2)
  1. ZICAM NO DRIP LIQUID NASAL GEL [Suspect]
     Indication: NASOPHARYNGITIS
     Dosage: 1 DOSE EACH NOSTRIL
     Route: 045
     Dates: start: 20040304
  2. ZICAM NO DRIP LIQUID NASAL GEL [Suspect]
     Indication: PROPHYLAXIS
     Dosage: 1 DOSE EACH NOSTRIL
     Route: 045
     Dates: start: 20040304

REACTIONS (2)
  - ANOSMIA [None]
  - NASAL DISCOMFORT [None]
